FAERS Safety Report 21931941 (Version 1)
Quarter: 2023Q1

REPORT INFORMATION
  Report Type: Spontaneous
  Country: CA (occurrence: CA)
  Receive Date: 20230131
  Receipt Date: 20230131
  Transmission Date: 20230417
  Serious: Yes (Other)
  Sender: FDA-Public Use
  Company Number: CA-IGSA-BIG0021961

PATIENT
  Age: 73 Year
  Sex: Female

DRUGS (7)
  1. HUMAN IMMUNOGLOBULIN G [Suspect]
     Active Substance: HUMAN IMMUNOGLOBULIN G
     Indication: Dermatomyositis
     Route: 065
  2. HUMAN IMMUNOGLOBULIN G [Suspect]
     Active Substance: HUMAN IMMUNOGLOBULIN G
     Indication: Off label use
  3. AZATHIOPRINE [Suspect]
     Active Substance: AZATHIOPRINE
     Indication: Dermatomyositis
     Dosage: 100 MILLIGRAM, QD
     Route: 065
  4. CYCLOSPORINE [Suspect]
     Active Substance: CYCLOSPORINE
     Indication: Dermatomyositis
     Dosage: 50 MILLIGRAM, QD
     Route: 065
  5. METHOTREXATE [Suspect]
     Active Substance: METHOTREXATE
     Indication: Dermatomyositis
     Dosage: 1 DOSAGE FORM
     Route: 065
  6. PREDNISONE [Suspect]
     Active Substance: PREDNISONE
     Indication: Dermatomyositis
     Dosage: 60 MILLIGRAM, QD
  7. RITUXIMAB [Concomitant]
     Active Substance: RITUXIMAB

REACTIONS (7)
  - Blood creatinine increased [Unknown]
  - Drug ineffective for unapproved indication [Unknown]
  - Dysphagia [Unknown]
  - Illness [Unknown]
  - Interstitial lung disease [Unknown]
  - Rash [Unknown]
  - Weight decreased [Unknown]
